FAERS Safety Report 22344734 (Version 1)
Quarter: 2023Q2

REPORT INFORMATION
  Report Type: Spontaneous
  Country: ES (occurrence: ES)
  Receive Date: 20230519
  Receipt Date: 20230519
  Transmission Date: 20230722
  Serious: Yes (Hospitalization)
  Sender: FDA-Public Use
  Company Number: None

PATIENT
  Age: 94 Year
  Sex: Male

DRUGS (7)
  1. QUETIAPINE [Interacting]
     Active Substance: QUETIAPINE
     Indication: Product used for unknown indication
     Dosage: 1 DOSAGE FORMS DAILY; 0-0-1, 60 TABLETS
     Route: 065
     Dates: start: 20230208
  2. BUPRENORPHINE [Interacting]
     Active Substance: BUPRENORPHINE
     Indication: Pain
     Dosage: 1/48H, 10 TRANSDERMAL PATCHES, FORM STRENGTH : 35 MICROGRAMS/H (72 H)
     Route: 065
     Dates: start: 20230419
  3. ZALDIAR [Interacting]
     Active Substance: ACETAMINOPHEN\TRAMADOL HYDROCHLORIDE
     Indication: Pain
     Dosage: 60 TABLETS, FORM STRENGTH : 37.5 MG/325 MG
     Route: 065
     Dates: start: 2022, end: 20230407
  4. ZALDIAR [Interacting]
     Active Substance: ACETAMINOPHEN\TRAMADOL HYDROCHLORIDE
     Dosage: 6 DOSAGE FORMS DAILY; 2-2-2, 60 TABLETS, FORM STRENGTH : 37.5 MG/325 MG
     Route: 065
     Dates: start: 20230408, end: 20230424
  5. RIVOTRIL [Interacting]
     Active Substance: CLONAZEPAM
     Indication: Agitation
     Dosage: 60 TABLETS
     Route: 065
     Dates: start: 2022, end: 20230418
  6. RIVOTRIL [Interacting]
     Active Substance: CLONAZEPAM
     Dosage: 2 MILLIGRAM DAILY; 0-0-1, 60 TABLETS
     Route: 065
     Dates: start: 20230419
  7. HALOPERIDOL [Interacting]
     Active Substance: HALOPERIDOL
     Indication: Agitation
     Dosage: 5-10-35 Y 5-10-50, HALOPERIDOL (1693A)
     Route: 065
     Dates: start: 20230419, end: 20230424

REACTIONS (3)
  - Pneumonia aspiration [Recovering/Resolving]
  - Depressed level of consciousness [Recovered/Resolved]
  - Drug interaction [Unknown]

NARRATIVE: CASE EVENT DATE: 20230423
